FAERS Safety Report 7569992-6 (Version None)
Quarter: 2011Q2

REPORT INFORMATION
  Report Type: 
  Country: None (occurrence: None)
  Receive Date: 20110622
  Receipt Date: 20110622
  Transmission Date: 20111010
  Serious: No
  Sender: FDA-Public Use
  Company Number: None

PATIENT
  Age: 55 Year
  Sex: Female

DRUGS (2)
  1. VITAMIN A+D CREAM NO LISTING FOR THIS NATUREPLEX [Suspect]
     Indication: SKIN DISORDER
     Dosage: FOR ADULTS: APPLY GENEROUSLY NOT LISTED
     Dates: start: 20110501, end: 20110621
  2. VITAMIN A+D CREAM NO LISTING FOR THIS NATUREPLEX [Suspect]
     Indication: SKIN IRRITATION
     Dosage: FOR ADULTS: APPLY GENEROUSLY NOT LISTED
     Dates: start: 20110501, end: 20110621

REACTIONS (2)
  - APPLICATION SITE PAIN [None]
  - APPLICATION SITE IRRITATION [None]
